FAERS Safety Report 10252307 (Version 2)
Quarter: 2014Q2

REPORT INFORMATION
  Report Type: Other
  Country: US (occurrence: US)
  Receive Date: 20140623
  Receipt Date: 20140623
  Transmission Date: 20141212
  Serious: Yes (Death, Other)
  Sender: FDA-Public Use
  Company Number: US-GSKPPD-2014GSK002189

PATIENT
  Age: 82 Year
  Sex: Female

DRUGS (1)
  1. AVANDIA [Suspect]
     Indication: DIABETES MELLITUS
     Route: 048
     Dates: start: 2006, end: 2006

REACTIONS (4)
  - Cardiac failure congestive [None]
  - Pulmonary embolism [Fatal]
  - Cardiomegaly [Not Recovered/Not Resolved]
  - Arteriosclerosis [Not Recovered/Not Resolved]
